FAERS Safety Report 19592773 (Version 1)
Quarter: 2021Q3

REPORT INFORMATION
  Report Type: Spontaneous
  Country: GB (occurrence: GB)
  Receive Date: 20210722
  Receipt Date: 20210722
  Transmission Date: 20211014
  Serious: Yes (Hospitalization)
  Sender: FDA-Public Use
  Company Number: GB-SUN PHARMACEUTICAL INDUSTRIES LTD-2021RR-305220

PATIENT
  Sex: Female

DRUGS (5)
  1. FERROUS FUMARATE [Concomitant]
     Active Substance: FERROUS FUMARATE
     Indication: ILL-DEFINED DISORDER
     Dosage: UNK
     Route: 065
  2. PREDNISOLONE. [Concomitant]
     Active Substance: PREDNISOLONE
     Indication: ILL-DEFINED DISORDER
     Dosage: UNK
     Route: 065
  3. LANSOPRAZOLE. [Suspect]
     Active Substance: LANSOPRAZOLE
     Indication: ILL-DEFINED DISORDER
     Dosage: 30MG BD
     Route: 048
  4. ROPINIROLE HYDROCHLORIDE. [Concomitant]
     Active Substance: ROPINIROLE HYDROCHLORIDE
     Indication: ILL-DEFINED DISORDER
     Dosage: UNK
     Route: 065
  5. LACTULOSE. [Concomitant]
     Active Substance: LACTULOSE
     Indication: ILL-DEFINED DISORDER
     Dosage: UNK
     Route: 065

REACTIONS (1)
  - Hyponatraemia [Recovered/Resolved with Sequelae]

NARRATIVE: CASE EVENT DATE: 20210630
